FAERS Safety Report 5011710-X (Version None)
Quarter: 2006Q2

REPORT INFORMATION
  Report Type: 
  Country: None (occurrence: None)
  Receive Date: 20060526
  Receipt Date: 20060523
  Transmission Date: 20061013
  Serious: Yes (Death)
  Sender: FDA-Public Use
  Company Number: 2006UW10014

PATIENT
  Sex: Male

DRUGS (2)
  1. SEROQUEL [Suspect]
     Indication: EXTRAPYRAMIDAL DISORDER
     Route: 048
  2. SEROQUEL [Suspect]
     Indication: TREMOR
     Route: 048

REACTIONS (3)
  - DEATH [None]
  - DIZZINESS [None]
  - FALL [None]
